FAERS Safety Report 8724846 (Version 4)
Quarter: 2013Q1

REPORT INFORMATION
  Report Type: Report from Study
  Country: IT (occurrence: IT)
  Receive Date: 20120815
  Receipt Date: 20130104
  Transmission Date: 20140127
  Serious: Yes (Hospitalization, Disabling)
  Sender: FDA-Public Use
  Company Number: IT-ROCHE-1100027

PATIENT
  Age: 57 Year
  Sex: Female

DRUGS (5)
  1. VEMURAFENIB [Suspect]
     Indication: METASTATIC MALIGNANT MELANOMA
     Dosage: LAST DOSE PRIOR TO SAE 02/JUL/2012
     Route: 048
     Dates: start: 20111026, end: 20120703
  2. VEMURAFENIB [Suspect]
     Route: 048
     Dates: start: 20120707
  3. ZITROMAX [Concomitant]
     Route: 065
     Dates: start: 20120705, end: 20120708
  4. TACHIPIRINA [Concomitant]
     Route: 065
     Dates: start: 20120705, end: 20120708
  5. ARANESP [Concomitant]
     Route: 065
     Dates: start: 20120622

REACTIONS (1)
  - Dysphagia [Recovered/Resolved]
